FAERS Safety Report 19661037 (Version 1)
Quarter: 2021Q3

REPORT INFORMATION
  Report Type: Spontaneous
  Country: US (occurrence: US)
  Receive Date: 20210805
  Receipt Date: 20210805
  Transmission Date: 20211014
  Serious: Yes (Death)
  Sender: FDA-Public Use
  Company Number: None

PATIENT
  Sex: Female
  Weight: 117 kg

DRUGS (15)
  1. INDAPAMIDE. [Concomitant]
     Active Substance: INDAPAMIDE
  2. ALLOPURINOL. [Concomitant]
     Active Substance: ALLOPURINOL
  3. SODIUM BICARBONATE. [Concomitant]
     Active Substance: SODIUM BICARBONATE
  4. CARVEDILOL. [Concomitant]
     Active Substance: CARVEDILOL
  5. AMLODIPINE [Concomitant]
     Active Substance: AMLODIPINE BESYLATE
  6. ATORVASTATIN [Concomitant]
     Active Substance: ATORVASTATIN
  7. TECENTRIQ [Suspect]
     Active Substance: ATEZOLIZUMAB
     Indication: NEOPLASM MALIGNANT
     Dosage: ?          OTHER FREQUENCY:EVERY 21 DAYS;?
     Route: 042
  8. INSULIN ASPART [Concomitant]
     Active Substance: INSULIN ASPART
  9. LISINOPRIL. [Concomitant]
     Active Substance: LISINOPRIL
  10. FAMOTIDINE. [Concomitant]
     Active Substance: FAMOTIDINE
  11. TAMSULOSIN [Concomitant]
     Active Substance: TAMSULOSIN
  12. ERGOCALCIFEROL. [Concomitant]
     Active Substance: ERGOCALCIFEROL
  13. CIPROFLOXACIN. [Concomitant]
     Active Substance: CIPROFLOXACIN
  14. LANTUS [Concomitant]
     Active Substance: INSULIN GLARGINE
  15. LEVOTHYROXINE. [Concomitant]
     Active Substance: LEVOTHYROXINE

REACTIONS (1)
  - Death [None]
